FAERS Safety Report 25620621 (Version 1)
Quarter: 2025Q3

REPORT INFORMATION
  Report Type: Spontaneous
  Country: US (occurrence: US)
  Receive Date: 20250730
  Receipt Date: 20250730
  Transmission Date: 20251020
  Serious: Yes (Other)
  Sender: ENDO
  Company Number: US-ENDO USA, INC.-2024-003082

PATIENT
  Sex: Male

DRUGS (11)
  1. TESTOPEL [Suspect]
     Active Substance: TESTOSTERONE
     Indication: Blood testosterone decreased
     Route: 065
     Dates: start: 2016
  2. TESTOPEL [Suspect]
     Active Substance: TESTOSTERONE
     Indication: Blood testosterone decreased
     Route: 065
     Dates: start: 2016
  3. TESTOPEL [Suspect]
     Active Substance: TESTOSTERONE
     Indication: Blood testosterone decreased
     Route: 065
     Dates: start: 2016
  4. TESTOPEL [Suspect]
     Active Substance: TESTOSTERONE
     Route: 065
  5. TESTOPEL [Suspect]
     Active Substance: TESTOSTERONE
     Route: 065
  6. TESTOPEL [Suspect]
     Active Substance: TESTOSTERONE
     Route: 065
  7. TESTOPEL [Suspect]
     Active Substance: TESTOSTERONE
     Route: 065
     Dates: start: 20250627
  8. TESTOPEL [Suspect]
     Active Substance: TESTOSTERONE
     Route: 065
     Dates: start: 20250627
  9. TESTOPEL [Suspect]
     Active Substance: TESTOSTERONE
     Route: 065
     Dates: start: 20250627
  10. SPIRONOLACTONE [Concomitant]
     Active Substance: SPIRONOLACTONE
     Indication: Hypertension
     Route: 048
     Dates: start: 2015
  11. ATORVASTATIN [Concomitant]
     Active Substance: ATORVASTATIN
     Indication: Blood cholesterol increased
     Route: 048
     Dates: start: 2015

REACTIONS (8)
  - Appendicectomy [Recovered/Resolved]
  - Prostatectomy [Recovered/Resolved]
  - Red cell distribution width increased [Unknown]
  - Cognitive disorder [Unknown]
  - Increased need for sleep [Unknown]
  - Sexual dysfunction [Not Recovered/Not Resolved]
  - Therapeutic response decreased [Unknown]
  - Off label use [Not Recovered/Not Resolved]

NARRATIVE: CASE EVENT DATE: 20160101
